FAERS Safety Report 25494353 (Version 1)
Quarter: 2025Q2

REPORT INFORMATION
  Report Type: Spontaneous
  Country: DE (occurrence: DE)
  Receive Date: 20250630
  Receipt Date: 20250630
  Transmission Date: 20250717
  Serious: Yes (Other)
  Sender: AMERICAN REGENT
  Company Number: DE-AMERICAN REGENT INC-2025002577

PATIENT
  Age: 14 Month
  Sex: Female
  Weight: 9.8 kg

DRUGS (2)
  1. FERINJECT [Suspect]
     Active Substance: FERRIC CARBOXYMALTOSE
     Indication: Iron deficiency
     Route: 042
     Dates: start: 20250623
  2. SODIUM CHLORIDE [Suspect]
     Active Substance: SODIUM CHLORIDE
     Indication: Product used for unknown indication
     Route: 042
     Dates: start: 20250623

REACTIONS (3)
  - Blood iron increased [Unknown]
  - Transferrin increased [Unknown]
  - Overdose [Unknown]

NARRATIVE: CASE EVENT DATE: 20250601
